FAERS Safety Report 9938703 (Version 1)
Quarter: 2014Q1

REPORT INFORMATION
  Report Type: Spontaneous
  Country: US (occurrence: US)
  Receive Date: 20140303
  Receipt Date: 20140303
  Transmission Date: 20141002
  Serious: Yes (Other)
  Sender: FDA-Public Use
  Company Number: US-BEH-2014040780

PATIENT
  Sex: Male

DRUGS (1)
  1. PRIVIGEN [Suspect]
     Route: 042
     Dates: start: 20140213

REACTIONS (4)
  - Meningitis aseptic [Unknown]
  - Vomiting [Unknown]
  - Migraine [Unknown]
  - Musculoskeletal stiffness [Unknown]
